FAERS Safety Report 12239579 (Version 2)
Quarter: 2016Q2

REPORT INFORMATION
  Report Type: Spontaneous
  Country: US (occurrence: US)
  Receive Date: 20160405
  Receipt Date: 20160503
  Transmission Date: 20160815
  Serious: No
  Sender: FDA-Public Use
  Company Number: US-GLAXOSMITHKLINE-US2016041661

PATIENT
  Sex: Male
  Weight: 51.7 kg

DRUGS (1)
  1. LAMICTAL [Suspect]
     Active Substance: LAMOTRIGINE
     Indication: SEIZURE
     Dosage: 275 MG, UNK
     Route: 048
     Dates: start: 20151119, end: 20160308

REACTIONS (1)
  - Product difficult to swallow [Unknown]
